FAERS Safety Report 4619688-5 (Version None)
Quarter: 2005Q1

REPORT INFORMATION
  Report Type: 
  Country: None (occurrence: None)
  Receive Date: 20050317
  Receipt Date: 20050317
  Transmission Date: 20050727
  Serious: Yes (Hospitalization)
  Sender: FDA-Public Use
  Company Number: None

PATIENT
  Age: 68 Year
  Sex: Male

DRUGS (17)
  1. VERAPAMIL [Suspect]
     Indication: ATRIAL FIBRILLATION
     Dosage: QD
     Dates: start: 20041015, end: 20041016
  2. METOPROLOL 12.5   PO [Suspect]
     Dosage: QD
     Dates: start: 20041015, end: 20050315
  3. FOSINOPRIL [Concomitant]
  4. METOPROLOL 50 MG [Concomitant]
  5. METFORMIN [Concomitant]
  6. GLIPIZIDE [Concomitant]
  7. HUMULIN 70/30 [Concomitant]
  8. LASIX [Concomitant]
  9. POTASSIUM CHLORIDE [Concomitant]
  10. ASPIRIN [Concomitant]
  11. COUMADIN [Concomitant]
  12. RANITIDINE [Concomitant]
  13. VERAPAMIL [Concomitant]
  14. ALLOPURINOL [Concomitant]
  15. COMBIVENT [Concomitant]
  16. ALBUTEROL [Concomitant]
  17. METOLAZONE [Concomitant]

REACTIONS (10)
  - ATRIAL FIBRILLATION [None]
  - BLOOD CREATININE INCREASED [None]
  - BRADYCARDIA [None]
  - CARDIAC FAILURE CONGESTIVE [None]
  - CONDITION AGGRAVATED [None]
  - FLUID OVERLOAD [None]
  - MENTAL STATUS CHANGES [None]
  - POST PROCEDURAL COMPLICATION [None]
  - PROCEDURAL HYPOTENSION [None]
  - URINE OUTPUT DECREASED [None]
